FAERS Safety Report 9117090 (Version 3)
Quarter: 2014Q1

REPORT INFORMATION
  Report Type: Report from Study
  Country: FR (occurrence: FR)
  Receive Date: 20130225
  Receipt Date: 20140106
  Transmission Date: 20141002
  Serious: Yes (Life-Threatening)
  Sender: FDA-Public Use
  Company Number: FR-JNJFOC-20130210605

PATIENT
  Age: 15 Year
  Sex: Male
  Weight: 48.7 kg

DRUGS (6)
  1. REMICADE [Suspect]
     Indication: CROHN^S DISEASE
     Route: 042
     Dates: end: 20130215
  2. REMICADE [Suspect]
     Indication: CROHN^S DISEASE
     Route: 042
     Dates: start: 20100301
  3. REMICADE [Suspect]
     Indication: CROHN^S DISEASE
     Route: 042
     Dates: start: 20120111, end: 20120608
  4. AZATHIOPRINE [Concomitant]
  5. ENTERAL NUTRITION [Concomitant]
  6. DEXCHLORPHENIRAMINE [Concomitant]
     Indication: PREMEDICATION

REACTIONS (2)
  - Anaphylactic reaction [Recovered/Resolved]
  - Anal fistula [Unknown]
